FAERS Safety Report 4488312-7 (Version None)
Quarter: 2004Q4

REPORT INFORMATION
  Report Type: 
  Country: None (occurrence: None)
  Receive Date: 20041028
  Receipt Date: 20041021
  Transmission Date: 20050328
  Serious: Yes (Hospitalization)
  Sender: FDA-Public Use
  Company Number: PHBS2004ES13962

PATIENT
  Age: 80 Year
  Sex: Male

DRUGS (6)
  1. NITRODERM [Suspect]
  2. ACOVIL [Suspect]
     Indication: HYPERTENSION
  3. LOFTON [Suspect]
  4. CARDURAN [Concomitant]
  5. GELOCATIL [Concomitant]
  6. ELORGAN [Concomitant]

REACTIONS (2)
  - ANGIONEUROTIC OEDEMA [None]
  - DYSPNOEA [None]
